FAERS Safety Report 13069079 (Version 1)
Quarter: 2016Q4

REPORT INFORMATION
  Report Type: Spontaneous
  Country: DE (occurrence: DE)
  Receive Date: 20161228
  Receipt Date: 20161228
  Transmission Date: 20170207
  Serious: Yes (Other)
  Sender: FDA-Public Use
  Company Number: DE-EMCURE PHARMS-2016HTG00309

PATIENT

DRUGS (1)
  1. BICNU [Suspect]
     Active Substance: CARMUSTINE
     Indication: GLIOMA
     Dosage: 100 MG/M2, DAILY ON 2 CONSECUTIVE DAYS EVERY 6 TO 8 WEEKS
     Route: 042

REACTIONS (1)
  - Deep vein thrombosis [Unknown]
